FAERS Safety Report 25225652 (Version 1)
Quarter: 2025Q2

REPORT INFORMATION
  Report Type: Spontaneous
  Country: FR (occurrence: FR)
  Receive Date: 20250422
  Receipt Date: 20250422
  Transmission Date: 20250717
  Serious: Yes (Hospitalization)
  Sender: CHEPLAPHARM
  Company Number: None

PATIENT
  Age: 26 Year
  Sex: Male

DRUGS (3)
  1. CLONAZEPAM [Suspect]
     Active Substance: CLONAZEPAM
     Dates: end: 202411
  2. LYRICA [Suspect]
     Active Substance: PREGABALIN
     Dosage: 1 TO 5 LYRICA 300 MG PER DAY?DAILY DOSE: 5 DOSAGE FORM
     Route: 048
     Dates: end: 20241122
  3. CANNABIS SATIVA SUBSP. INDICA TOP [Suspect]
     Active Substance: CANNABIS SATIVA SUBSP. INDICA TOP
     Route: 055

REACTIONS (7)
  - Wound [Unknown]
  - Somnolence [Recovered/Resolved]
  - Mydriasis [Recovered/Resolved]
  - Hypotension [Recovered/Resolved]
  - Psychomotor retardation [Unknown]
  - Joint dislocation [Unknown]
  - Radial nerve injury [Unknown]

NARRATIVE: CASE EVENT DATE: 20241123
